FAERS Safety Report 9537562 (Version 1)
Quarter: 2013Q3

REPORT INFORMATION
  Report Type: Spontaneous
  Country: GB (occurrence: GB)
  Receive Date: 20130919
  Receipt Date: 20130919
  Transmission Date: 20140515
  Serious: Yes (Disabling)
  Sender: FDA-Public Use
  Company Number: GB-TEVA-432007ISR

PATIENT
  Age: 75 Year
  Sex: Female
  Weight: 65.5 kg

DRUGS (4)
  1. ALENDRONIC ACID [Suspect]
     Route: 048
     Dates: start: 20130510
  2. CALCEOS [Concomitant]
     Dates: start: 20130429, end: 20130628
  3. AMITRIPTYLINE HYDROCHLORIDE [Concomitant]
     Dates: start: 20130702, end: 20130730
  4. LANSOPRAZOLE [Concomitant]
     Dates: start: 20130702, end: 20130730

REACTIONS (3)
  - Myalgia [Not Recovered/Not Resolved]
  - Fatigue [Unknown]
  - Musculoskeletal stiffness [Unknown]
